FAERS Safety Report 7636730-8 (Version None)
Quarter: 2011Q3

REPORT INFORMATION
  Report Type: 
  Country: None (occurrence: None)
  Receive Date: 20110726
  Receipt Date: 20110722
  Transmission Date: 20111222
  Serious: Yes (Death)
  Sender: FDA-Public Use
  Company Number: JP-ASTRAZENECA-2011SE29625

PATIENT
  Age: 72 Year
  Sex: Female
  Weight: 53 kg

DRUGS (13)
  1. DECADRON [Concomitant]
     Indication: INTRACRANIAL PRESSURE INCREASED
     Route: 048
     Dates: start: 20101203, end: 20110421
  2. NORVASC [Concomitant]
     Indication: HYPERTENSION
     Route: 048
     Dates: start: 20101103, end: 20110421
  3. PURSENNID [Concomitant]
     Indication: CONSTIPATION
     Route: 048
     Dates: start: 20101104, end: 20110421
  4. P GUARD [Concomitant]
     Indication: CANCER PAIN
     Route: 048
     Dates: start: 20110318, end: 20110421
  5. HUSTAZOL [Concomitant]
     Indication: LUNG ADENOCARCINOMA RECURRENT
     Route: 048
     Dates: start: 20100723, end: 20110421
  6. LOXONIN [Concomitant]
     Indication: CANCER PAIN
     Route: 048
     Dates: start: 20100908, end: 20110421
  7. ZOLPIDEM [Concomitant]
     Indication: INSOMNIA
     Route: 048
     Dates: start: 20100831, end: 20110421
  8. CARBOPLATIN [Concomitant]
     Dates: start: 20100803, end: 20100803
  9. MAGNESIUM SULFATE [Concomitant]
     Indication: CONSTIPATION
     Route: 048
     Dates: start: 20100730, end: 20110421
  10. IRESSA [Suspect]
     Indication: LUNG ADENOCARCINOMA RECURRENT
     Route: 048
     Dates: start: 20110412, end: 20110418
  11. PRIMPERAN TAB [Concomitant]
     Indication: NAUSEA
     Route: 048
     Dates: start: 20110328, end: 20110421
  12. ROXATIDINE ACETATE HCL [Concomitant]
     Indication: GASTRIC ULCER
     Route: 048
     Dates: start: 20101211, end: 20110421
  13. MUCOSTA [Concomitant]
     Indication: GASTRIC ULCER
     Route: 048
     Dates: start: 20100908, end: 20110421

REACTIONS (1)
  - INTERSTITIAL LUNG DISEASE [None]
